FAERS Safety Report 6491483-4 (Version None)
Quarter: 2009Q4

REPORT INFORMATION
  Report Type: 
  Country: None (occurrence: None)
  Receive Date: 20091211
  Receipt Date: 20091202
  Transmission Date: 20100525
  Serious: Yes (Life-Threatening)
  Sender: FDA-Public Use
  Company Number: ES-ABBOTT-09P-144-0611850-00

PATIENT
  Age: 67 Year
  Sex: Male

DRUGS (9)
  1. HUMIRA [Suspect]
     Indication: CHOROIDITIS
     Route: 058
     Dates: start: 20090101
  2. PREDNISONE [Suspect]
     Indication: CHOROIDITIS
     Route: 048
     Dates: start: 19990101
  3. SANDIMMUNE [Suspect]
     Indication: CHOROIDITIS
     Dates: start: 19990101, end: 20090101
  4. CALCIUM-SANDOZ FORTE [Concomitant]
     Indication: DRUG USE FOR UNKNOWN INDICATION
     Route: 048
  5. FOSAMAX 70 MG SEMANAL [Concomitant]
     Indication: DRUG USE FOR UNKNOWN INDICATION
     Route: 048
  6. OMNIC [Concomitant]
     Indication: DRUG USE FOR UNKNOWN INDICATION
     Route: 048
  7. PLANTABEN [Concomitant]
     Indication: DRUG USE FOR UNKNOWN INDICATION
  8. RANITIDINA [Concomitant]
     Indication: DRUG USE FOR UNKNOWN INDICATION
  9. TIMOFTOL [Concomitant]
     Indication: DRUG USE FOR UNKNOWN INDICATION

REACTIONS (2)
  - ADENOMATOUS POLYPOSIS COLI [None]
  - RECTOSIGMOID CANCER [None]
